FAERS Safety Report 25979415 (Version 2)
Quarter: 2025Q4

REPORT INFORMATION
  Report Type: Spontaneous
  Country: US (occurrence: US)
  Receive Date: 20251030
  Receipt Date: 20251214
  Transmission Date: 20260117
  Serious: No
  Sender: ALEXION PHARMACEUTICALS
  Company Number: US-AstraZeneca-CH-00979036AP

PATIENT
  Sex: Male

DRUGS (1)
  1. BREZTRI [Suspect]
     Active Substance: BUDESONIDE\FORMOTEROL\GLYCOPYRROLATE

REACTIONS (6)
  - Wrong technique in device usage process [Unknown]
  - Product use issue [Unknown]
  - Product label confusion [Unknown]
  - Hypoacusis [Unknown]
  - Product dose omission issue [Unknown]
  - Intentional device misuse [Unknown]
